FAERS Safety Report 12489550 (Version 2)
Quarter: 2016Q3

REPORT INFORMATION
  Report Type: Spontaneous
  Country: US (occurrence: US)
  Receive Date: 20160622
  Receipt Date: 20160712
  Transmission Date: 20161109
  Serious: No
  Sender: FDA-Public Use
  Company Number: US-B.I. PHARMACEUTICALS,INC./RIDGEFIELD-2016-BI-37432BP

PATIENT
  Age: 67 Year
  Sex: Female

DRUGS (6)
  1. MORPHINE SULFATE. [Concomitant]
     Active Substance: MORPHINE SULFATE
     Indication: BONE PAIN
     Dosage: 15 MG
     Route: 048
  2. MONTELUKAST [Concomitant]
     Active Substance: MONTELUKAST SODIUM
     Indication: CHRONIC OBSTRUCTIVE PULMONARY DISEASE
     Dosage: 10 MG
     Route: 048
     Dates: start: 201605
  3. SYMBICORT [Concomitant]
     Active Substance: BUDESONIDE\FORMOTEROL FUMARATE DIHYDRATE
     Indication: CHRONIC OBSTRUCTIVE PULMONARY DISEASE
     Dosage: DOSE PER APPLICATION: 160 MCG / 4.5 MCG; DAILY DOSE: 320 MCG/9 MCG
     Route: 055
     Dates: start: 201605
  4. FENTANYL. [Concomitant]
     Active Substance: FENTANYL
     Indication: OSTEOPOROSIS
     Dosage: 4.1667 MCG
     Route: 062
     Dates: start: 2014
  5. NORVASC [Concomitant]
     Active Substance: AMLODIPINE BESYLATE
     Indication: HYPERTENSION
     Dosage: 10 MG
     Route: 048
     Dates: start: 2013
  6. COMBIVENT [Suspect]
     Active Substance: ALBUTEROL SULFATE\IPRATROPIUM BROMIDE
     Indication: CHRONIC OBSTRUCTIVE PULMONARY DISEASE
     Dosage: DOSE PER APPLICATION: 20 MCG / 100 MCG; DAILY DOSE: 80 MCG/400
     Route: 055
     Dates: start: 2015

REACTIONS (3)
  - Drug ineffective [Not Recovered/Not Resolved]
  - Product quality issue [Unknown]
  - Chronic obstructive pulmonary disease [Not Recovered/Not Resolved]

NARRATIVE: CASE EVENT DATE: 2016
